FAERS Safety Report 9619545 (Version 1)
Quarter: 2013Q4

REPORT INFORMATION
  Report Type: Spontaneous
  Country: US (occurrence: US)
  Receive Date: 20131014
  Receipt Date: 20131014
  Transmission Date: 20140711
  Serious: No
  Sender: FDA-Public Use
  Company Number: US-TEVA-436016USA

PATIENT
  Age: 47 Year
  Sex: Male

DRUGS (3)
  1. TREANDA [Suspect]
     Indication: PRODUCT USED FOR UNKNOWN INDICATION
     Dates: start: 20130826
  2. TREANDA [Suspect]
     Dates: start: 20131001
  3. RITUXAN [Concomitant]

REACTIONS (1)
  - Vein disorder [Unknown]
